FAERS Safety Report 9175674 (Version 2)
Quarter: 2012Q4

REPORT INFORMATION
  Report Type: 
  Country: US (occurrence: US)
  Receive Date: 20120913
  Receipt Date: 20120917
  Transmission Date: 20130627
  Serious: Yes (Other)
  Sender: FDA-Public Use
  Company Number: US-RB-044312-12

PATIENT
  Age: 43 Year
  Sex: Female

DRUGS (4)
  1. MUCINEX D MAXIMUM STRENGTH [Suspect]
     Indication: PRODUCT USED FOR UNKNOWN INDICATION
     Dosage: Last dose was taken on 03-Sep-2012
     Route: 048
     Dates: start: 20120903
  2. TYLENOL [Concomitant]
     Indication: HEADACHE
     Dates: start: 20120903
  3. BIRTH CONTROL PILLS [Concomitant]
     Indication: PRODUCT USED FOR UNKNOWN INDICATION
     Dosage: once a day
  4. METOPROLOL [Concomitant]
     Indication: PRODUCT USED FOR UNKNOWN INDICATION
     Dosage: once a day

REACTIONS (5)
  - Glaucoma [Recovered/Resolved]
  - Eye pain [Recovered/Resolved]
  - Headache [Recovered/Resolved]
  - Facial pain [Recovered/Resolved]
  - Pain [Recovered/Resolved]
